FAERS Safety Report 5288394-9 (Version None)
Quarter: 2007Q2

REPORT INFORMATION
  Report Type: 
  Country: None (occurrence: None)
  Receive Date: 20070405
  Receipt Date: 20070330
  Transmission Date: 20071010
  Serious: Yes (Other)
  Sender: FDA-Public Use
  Company Number: 2006UW08372

PATIENT
  Age: 39 Year
  Sex: Female
  Weight: 131.8 kg

DRUGS (1)
  1. SEROQUEL [Suspect]
     Indication: INSOMNIA
     Route: 048
     Dates: start: 20040401, end: 20041001

REACTIONS (4)
  - ASTHMA [None]
  - DIABETES MELLITUS [None]
  - DYSPNOEA [None]
  - RESPIRATORY FAILURE [None]
